FAERS Safety Report 8610349-4 (Version None)
Quarter: 2012Q3

REPORT INFORMATION
  Report Type: 
  Country: None (occurrence: None)
  Receive Date: 20120822
  Receipt Date: 20120817
  Transmission Date: 20120928
  Serious: Yes (Death)
  Sender: FDA-Public Use
  Company Number: PHHY2012DE071313

PATIENT
  Sex: Female

DRUGS (5)
  1. EXJADE [Suspect]
     Indication: ACUTE MYELOID LEUKAEMIA
     Dosage: 500 MG, DAILY
     Route: 048
  2. LEVOFLOXACIN [Concomitant]
     Dosage: 500 MG, UNK
     Dates: start: 20110804
  3. NOVALGIN [Concomitant]
     Dates: start: 20110818
  4. TRAMADOL HCL [Concomitant]
     Dates: start: 20110818
  5. ONDANSETRON [Concomitant]
     Dosage: 8 MG, UNK
     Dates: start: 20110804

REACTIONS (2)
  - ORGAN FAILURE [None]
  - SEPSIS [None]
